FAERS Safety Report 10639882 (Version 3)
Quarter: 2014Q4

REPORT INFORMATION
  Report Type: Report from Study
  Country: BE (occurrence: BE)
  Receive Date: 20141209
  Receipt Date: 20141212
  Transmission Date: 20150529
  Serious: Yes (Death, Hospitalization)
  Sender: FDA-Public Use
  Company Number: PHHO2014BE011913

PATIENT
  Age: 30 Year
  Sex: Female
  Weight: 62 kg

DRUGS (4)
  1. TEDRAL [Concomitant]
     Active Substance: EPHEDRINE HYDROCHLORIDE\PHENOBARBITAL\THEOPHYLLINE
     Dosage: 16 MG, QD
     Route: 065
     Dates: start: 20140901
  2. LDK378 [Suspect]
     Active Substance: CERITINIB
     Dosage: 750 MG, QD
     Route: 065
     Dates: start: 20140901
  3. TEDRAL [Concomitant]
     Active Substance: EPHEDRINE HYDROCHLORIDE\PHENOBARBITAL\THEOPHYLLINE
     Indication: METASTASES TO CENTRAL NERVOUS SYSTEM
     Dosage: 16 MG, QD
     Route: 065
     Dates: start: 20140414
  4. LDK378 [Suspect]
     Active Substance: CERITINIB
     Indication: NON-SMALL CELL LUNG CANCER
     Dosage: 750 MG, QD
     Route: 065
     Dates: start: 20140718, end: 20141127

REACTIONS (4)
  - Metastases to central nervous system [Fatal]
  - Epilepsy [Unknown]
  - Disease progression [Fatal]
  - General physical health deterioration [Unknown]

NARRATIVE: CASE EVENT DATE: 20140901
